FAERS Safety Report 9129276 (Version 1)
Quarter: 2013Q1

REPORT INFORMATION
  Report Type: Report from Study
  Country: CL (occurrence: CL)
  Receive Date: 20130125
  Receipt Date: 20130125
  Transmission Date: 20140127
  Serious: Yes (Other)
  Sender: FDA-Public Use
  Company Number: CL-ROCHE-1183215

PATIENT
  Age: 85 Year
  Sex: Female

DRUGS (1)
  1. METHOXY POLYETHYLENE GLYCOL-EPOETIN BETA [Suspect]
     Indication: ANAEMIA
     Route: 058
     Dates: start: 20090601

REACTIONS (1)
  - Breast cancer [Unknown]
